FAERS Safety Report 7228059-7 (Version None)
Quarter: 2010Q4

REPORT INFORMATION
  Report Type: 
  Country: None (occurrence: None)
  Receive Date: 20101126
  Receipt Date: 20100914
  Transmission Date: 20110411
  Serious: No
  Sender: FDA-Public Use
  Company Number: 314949

PATIENT
  Age: 64 Year
  Sex: Female

DRUGS (5)
  1. VICTOZA [Suspect]
     Indication: TYPE 2 DIABETES MELLITUS
     Dosage: SUBCUTANEOUS
     Route: 058
  2. GLUCOVANCE /01182201/ (GLIBENCLAMIDE, METFORMIN HYDROCHLRIDE) [Concomitant]
  3. ACTOSE (PIOGLITAZONE HYDROCHLORIDE) [Concomitant]
  4. VICTRIN (LORATADINE) [Concomitant]
  5. AVAPRO (IBRESARTAN) [Concomitant]

REACTIONS (1)
  - INJECTION SITE HAEMATOMA [None]
